FAERS Safety Report 19258876 (Version 1)
Quarter: 2021Q2

REPORT INFORMATION
  Report Type: Spontaneous
  Country: IE (occurrence: IE)
  Receive Date: 20210514
  Receipt Date: 20210514
  Transmission Date: 20210717
  Serious: Yes (Other)
  Sender: FDA-Public Use
  Company Number: IE-PFIZER INC-2021502205

PATIENT
  Age: 48 Year
  Sex: Male

DRUGS (3)
  1. AXITINIB [Suspect]
     Active Substance: AXITINIB
     Dosage: 5 MG, 2X/DAY WITH PLAN TO ESCALATE TO 7MG
     Dates: start: 201505
  2. AXITINIB [Suspect]
     Active Substance: AXITINIB
     Dosage: 3MG/5MG AM/PM
     Dates: start: 2014, end: 201505
  3. AXITINIB [Suspect]
     Active Substance: AXITINIB
     Dosage: 5 MG, 2X/DAY
     Dates: start: 201403

REACTIONS (14)
  - Nausea [Unknown]
  - Haemorrhoidal haemorrhage [Unknown]
  - Hypertension [Unknown]
  - Palmar-plantar erythrodysaesthesia syndrome [Unknown]
  - Dysphonia [Unknown]
  - Abdominal discomfort [Unknown]
  - Diarrhoea [Not Recovered/Not Resolved]
  - Fatigue [Not Recovered/Not Resolved]
  - Decreased appetite [Unknown]
  - Dyspepsia [Unknown]
  - Abdominal distension [Unknown]
  - Weight decreased [Unknown]
  - Proctalgia [Unknown]
  - Thyroid disorder [Unknown]

NARRATIVE: CASE EVENT DATE: 201503
